FAERS Safety Report 25073312 (Version 1)
Quarter: 2025Q1

REPORT INFORMATION
  Report Type: Spontaneous
  Country: US (occurrence: US)
  Receive Date: 20250313
  Receipt Date: 20250313
  Transmission Date: 20250408
  Serious: No
  Sender: SANOFI AVENTIS
  Company Number: US-SA-2025SA074007

PATIENT
  Age: 62 Year
  Sex: Male

DRUGS (15)
  1. REZUROCK [Suspect]
     Active Substance: BELUMOSUDIL
     Indication: Graft versus host disease
     Dosage: 200 MG, QD
     Route: 048
  2. ACYCLOVIR [Concomitant]
     Active Substance: ACYCLOVIR
  3. ASPIRIN [Concomitant]
     Active Substance: ASPIRIN
  4. ATORVASTATIN [Concomitant]
     Active Substance: ATORVASTATIN
  5. COENZYME Q10 [Concomitant]
     Active Substance: DIETARY SUPPLEMENT\UBIDECARENONE
  6. GLIMEPIRIDE [Concomitant]
     Active Substance: GLIMEPIRIDE
  7. HUMALOG [Concomitant]
     Active Substance: INSULIN LISPRO
  8. LOSARTAN [Concomitant]
     Active Substance: LOSARTAN
  9. MAGNESIUM [Concomitant]
     Active Substance: MAGNESIUM
  10. METFORMIN [Concomitant]
     Active Substance: METFORMIN HYDROCHLORIDE
  11. OMEGA 3 [Concomitant]
     Active Substance: CAPSAICIN
  12. TADALAFIL [Concomitant]
     Active Substance: TADALAFIL
  13. VITAMIN C [Concomitant]
     Active Substance: ASCORBIC ACID
  14. VITAMIN D3 [Concomitant]
     Active Substance: CHOLECALCIFEROL
  15. ZETIA [Concomitant]
     Active Substance: EZETIMIBE

REACTIONS (1)
  - Diarrhoea [Recovering/Resolving]
